FAERS Safety Report 4616845-9 (Version None)
Quarter: 2005Q1

REPORT INFORMATION
  Report Type: 
  Country: None (occurrence: None)
  Receive Date: 20050321
  Receipt Date: 20040216
  Transmission Date: 20050727
  Serious: Yes (Hospitalization)
  Sender: FDA-Public Use
  Company Number: 7491

PATIENT
  Age: 70 Year
  Sex: Male

DRUGS (3)
  1. GLYCERYL TRINITRATE [Suspect]
     Indication: ANGINA PECTORIS
     Route: 060
     Dates: start: 20040120, end: 20040120
  2. ATORVASTATIN CALCIUM [Concomitant]
  3. NIFEDIPINE [Concomitant]

REACTIONS (5)
  - DEPRESSED LEVEL OF CONSCIOUSNESS [None]
  - DIZZINESS [None]
  - HYPERHIDROSIS [None]
  - HYPOTENSION [None]
  - PALLOR [None]
